FAERS Safety Report 8268066-9 (Version None)
Quarter: 2012Q2

REPORT INFORMATION
  Report Type: 
  Country: None (occurrence: None)
  Receive Date: 20120404
  Receipt Date: 20120326
  Transmission Date: 20120825
  Serious: Yes (Other)
  Sender: FDA-Public Use
  Company Number: 2012SP017045

PATIENT

DRUGS (1)
  1. HEPARIN [Suspect]
     Indication: ANTICOAGULANT THERAPY

REACTIONS (7)
  - POST PROCEDURAL HAEMORRHAGE [None]
  - CEREBRAL HAEMORRHAGE [None]
  - ARTERIAL THROMBOSIS [None]
  - VENOUS THROMBOSIS [None]
  - PULMONARY HAEMORRHAGE [None]
  - INCISION SITE HAEMORRHAGE [None]
  - EMBOLISM [None]
